FAERS Safety Report 24444137 (Version 2)
Quarter: 2024Q4

REPORT INFORMATION
  Report Type: Report from Study
  Country: US (occurrence: US)
  Receive Date: 20241016
  Receipt Date: 20241017
  Transmission Date: 20250115
  Serious: No
  Sender: ROCHE
  Company Number: US-ROCHE-2485190

PATIENT
  Age: 73 Year
  Sex: Female
  Weight: 174.0 kg

DRUGS (11)
  1. RITUXAN [Suspect]
     Active Substance: RITUXIMAB
     Indication: Non-small cell lung cancer
     Route: 065
  2. RITUXAN [Suspect]
     Active Substance: RITUXIMAB
     Indication: Lung neoplasm malignant
  3. ALLEGRA-D [Concomitant]
     Active Substance: FEXOFENADINE HYDROCHLORIDE\PSEUDOEPHEDRINE HYDROCHLORIDE
  4. AMBIEN CR [Concomitant]
     Active Substance: ZOLPIDEM TARTRATE
  5. CODEINE SULFATE [Concomitant]
     Active Substance: CODEINE SULFATE
  6. DULERA [Concomitant]
     Active Substance: FORMOTEROL FUMARATE DIHYDRATE\MOMETASONE FUROATE
  7. ELIQUIS [Concomitant]
     Active Substance: APIXABAN
  8. KEFLEX [Concomitant]
     Active Substance: CEPHALEXIN
  9. MUCINEX [Concomitant]
     Active Substance: GUAIFENESIN
  10. XANAX [Concomitant]
     Active Substance: ALPRAZOLAM
  11. ZITHROMAX [Concomitant]
     Active Substance: AZITHROMYCIN DIHYDRATE

REACTIONS (3)
  - Off label use [Unknown]
  - Anaemia vitamin B12 deficiency [Unknown]
  - Fatigue [Unknown]
